FAERS Safety Report 7290978-3 (Version None)
Quarter: 2011Q1

REPORT INFORMATION
  Report Type: 
  Country: None (occurrence: None)
  Receive Date: 20110214
  Receipt Date: 20110201
  Transmission Date: 20110831
  Serious: Yes (Hospitalization)
  Sender: FDA-Public Use
  Company Number: US-ACTELION-A-NJ2010-43415

PATIENT

DRUGS (3)
  1. WARFARIN [Concomitant]
  2. TRACLEER [Suspect]
     Indication: PULMONARY ARTERIAL HYPERTENSION
     Dosage: UNK
     Route: 048
     Dates: start: 20100709
  3. CALCIUM CHANNEL BLOCKERS [Concomitant]

REACTIONS (2)
  - NO THERAPEUTIC RESPONSE [None]
  - CARDIAC OPERATION [None]
